FAERS Safety Report 16641940 (Version 4)
Quarter: 2020Q4

REPORT INFORMATION
  Report Type: Report from Study
  Country: PT (occurrence: PT)
  Receive Date: 20190729
  Receipt Date: 20201111
  Transmission Date: 20210113
  Serious: Yes (Hospitalization, Other)
  Sender: FDA-Public Use
  Company Number: PT-AUROBINDO-AUR-APL-2019-044812

PATIENT
  Age: 67 Year
  Sex: Female

DRUGS (20)
  1. DAPTOMYCIN. [Concomitant]
     Active Substance: DAPTOMYCIN
     Indication: PRODUCT USED FOR UNKNOWN INDICATION
     Dosage: 500 MILLIGRAM, ONCE A DAY
     Route: 065
  2. BISOPROLOL [Suspect]
     Active Substance: BISOPROLOL
     Indication: PRODUCT USED FOR UNKNOWN INDICATION
     Dosage: 5 MILLIGRAM, DAILY
     Route: 065
  3. FUROSEMIDE. [Suspect]
     Active Substance: FUROSEMIDE
     Indication: PRODUCT USED FOR UNKNOWN INDICATION
     Dosage: 40 MILLIGRAM, DAILY
     Route: 065
  4. IMIPENEM [Suspect]
     Active Substance: IMIPENEM
     Indication: PYREXIA
     Dosage: UNK
     Route: 065
     Dates: start: 2017
  5. INSULINE ASPARTE [Suspect]
     Active Substance: INSULIN ASPART
     Indication: PRODUCT USED FOR UNKNOWN INDICATION
     Dosage: 42 U, 3 TIMES A DAY
     Route: 065
  6. CEFTAZIDIME. [Concomitant]
     Active Substance: CEFTAZIDIME
     Indication: URINARY TRACT INFECTION
     Dosage: 2 GRAM, 3 TIMES A DAY
     Route: 065
  7. ACETYLSALICYLIC ACID [Suspect]
     Active Substance: ASPIRIN
     Indication: PRODUCT USED FOR UNKNOWN INDICATION
     Dosage: 100 MILLIGRAM, DAILY
     Route: 065
  8. ALLOPURINOL. [Suspect]
     Active Substance: ALLOPURINOL
     Indication: PRODUCT USED FOR UNKNOWN INDICATION
     Dosage: 100 MILLIGRAM, ONCE A DAY
     Route: 065
  9. INSULINE ASPARTE [Suspect]
     Active Substance: INSULIN ASPART
     Dosage: 126 INTERNATIONAL UNIT, ONCE A DAY
     Route: 065
  10. METOLAZONE. [Suspect]
     Active Substance: METOLAZONE
     Indication: PRODUCT USED FOR UNKNOWN INDICATION
     Dosage: 5 MILLIGRAM, DAILY
     Route: 065
  11. LINAGLIPTIN [Concomitant]
     Active Substance: LINAGLIPTIN
     Indication: PRODUCT USED FOR UNKNOWN INDICATION
     Dosage: 5 MILLIGRAM, ONCE A DAY
     Route: 065
  12. ERTAPENEM POWDER FOR CONCENTRATE FOR SOLUTION FOR INFUSION [Suspect]
     Active Substance: ERTAPENEM
     Indication: DEVICE RELATED INFECTION
     Dosage: 1 GRAM, TWO TIMES A DAY
     Route: 065
  13. IMIPENEM [Suspect]
     Active Substance: IMIPENEM
     Indication: INFLAMMATION
  14. TRAJENTA [Suspect]
     Active Substance: LINAGLIPTIN
     Indication: PRODUCT USED FOR UNKNOWN INDICATION
     Dosage: 5 MILLIGRAM, DAILY
     Route: 065
  15. LINEZOLID. [Suspect]
     Active Substance: LINEZOLID
     Indication: SEPTIC SHOCK
     Dosage: UNK
     Route: 065
  16. RAMIPRIL. [Suspect]
     Active Substance: RAMIPRIL
     Indication: PRODUCT USED FOR UNKNOWN INDICATION
     Dosage: 1.25 MILLIGRAM, DAILY
     Route: 065
  17. SPIRONOLACTONE. [Suspect]
     Active Substance: SPIRONOLACTONE
     Indication: PRODUCT USED FOR UNKNOWN INDICATION
     Dosage: 25 MILLIGRAM, DAILY
     Route: 065
  18. DILTIAZEM. [Suspect]
     Active Substance: DILTIAZEM
     Indication: PRODUCT USED FOR UNKNOWN INDICATION
     Dosage: 120 MILLIGRAM, TWO TIMES A DAY (240 MG ONCE  A DAY)
     Route: 065
  19. ERTAPENEM POWDER FOR CONCENTRATE FOR SOLUTION FOR INFUSION [Suspect]
     Active Substance: ERTAPENEM
     Indication: STAPHYLOCOCCAL BACTERAEMIA
  20. CEFTAZIDIME. [Concomitant]
     Active Substance: CEFTAZIDIME
     Indication: URINARY TRACT INFECTION PSEUDOMONAL

REACTIONS (31)
  - Asterixis [Recovered/Resolved]
  - Poor quality sleep [Recovered/Resolved]
  - Urinary tract infection [Recovered/Resolved]
  - Joint effusion [Recovered/Resolved]
  - Neurotoxicity [Recovered/Resolved]
  - Enterobacter bacteraemia [Recovered/Resolved]
  - Arthritis [Recovered/Resolved]
  - Attention deficit hyperactivity disorder [Recovered/Resolved]
  - Septic shock [Recovered/Resolved]
  - Metabolic disorder [Unknown]
  - Acute psychosis [Recovered/Resolved]
  - Catheter site inflammation [Recovered/Resolved]
  - Synovitis [Recovered/Resolved]
  - Device related infection [Recovered/Resolved]
  - Clonus [Recovered/Resolved]
  - Inflammatory marker increased [Recovered/Resolved]
  - Oedema peripheral [Recovered/Resolved]
  - Delirium [Recovered/Resolved]
  - Staphylococcal sepsis [Recovered/Resolved]
  - Sepsis [Recovered/Resolved]
  - Back pain [Recovered/Resolved]
  - Off label use [Unknown]
  - Disorientation [Recovered/Resolved]
  - Psychomotor hyperactivity [Recovered/Resolved]
  - Intervertebral discitis [Recovered/Resolved]
  - Pyrexia [Recovered/Resolved]
  - Hallucination, visual [Recovered/Resolved]
  - Staphylococcal infection [Recovered/Resolved]
  - Pseudomonas infection [Recovered/Resolved]
  - Klebsiella infection [Recovered/Resolved]
  - Oedema [Recovered/Resolved]

NARRATIVE: CASE EVENT DATE: 2017
